FAERS Safety Report 9435611 (Version 4)
Quarter: 2013Q3

REPORT INFORMATION
  Report Type: Spontaneous
  Country: US (occurrence: US)
  Receive Date: 20130801
  Receipt Date: 20130920
  Transmission Date: 20140515
  Serious: Yes (Death, Hospitalization, Other)
  Sender: FDA-Public Use
  Company Number: US-BAXTER-2013BAX029712

PATIENT
  Age: 9 Month
  Sex: Female

DRUGS (2)
  1. DIANEAL PD2 [Suspect]
     Indication: PERITONEAL DIALYSIS
     Route: 033
     Dates: start: 201209
  2. DIANEAL PD2 [Suspect]
     Indication: PERITONEAL DIALYSIS
     Route: 033
     Dates: start: 201209

REACTIONS (10)
  - Multimorbidity [Fatal]
  - Septic shock [Recovering/Resolving]
  - Gastrointestinal necrosis [Recovered/Resolved]
  - Escherichia infection [Recovering/Resolving]
  - Arteriovenous fistula thrombosis [Recovered/Resolved]
  - Small intestinal obstruction [Unknown]
  - Fungal peritonitis [Recovering/Resolving]
  - Irritability [Unknown]
  - Fluid overload [Recovering/Resolving]
  - Abdominal distension [Unknown]
